FAERS Safety Report 9847273 (Version 1)
Quarter: 2014Q1

REPORT INFORMATION
  Report Type: Spontaneous
  Country: US (occurrence: US)
  Receive Date: 20140127
  Receipt Date: 20140127
  Transmission Date: 20141002
  Serious: Yes (Hospitalization)
  Sender: FDA-Public Use
  Company Number: US-DYAX CORP.-2013DX000074

PATIENT
  Age: 48 Year
  Sex: Female
  Weight: 72.64 kg

DRUGS (5)
  1. KALBITOR [Suspect]
     Indication: HEREDITARY ANGIOEDEMA
     Route: 058
     Dates: start: 20130415, end: 20130415
  2. KALBITOR [Suspect]
     Route: 058
     Dates: start: 20130415, end: 20130415
  3. KALBITOR [Suspect]
     Route: 058
     Dates: start: 20130416, end: 20130416
  4. KALBITOR [Suspect]
     Route: 058
     Dates: start: 20130413, end: 20130413
  5. KALBITOR [Suspect]
     Route: 058
     Dates: start: 201211

REACTIONS (2)
  - Hereditary angioedema [Recovered/Resolved]
  - Drug administration error [Unknown]
